FAERS Safety Report 8515025-4 (Version None)
Quarter: 2012Q3

REPORT INFORMATION
  Report Type: 
  Country: None (occurrence: None)
  Receive Date: 20120717
  Receipt Date: 20120706
  Transmission Date: 20120928
  Serious: Yes (Hospitalization, Other)
  Sender: FDA-Public Use
  Company Number: JP-VERTEX PHARMACEUTICALS INC.-AE-2012-009996

PATIENT
  Age: 63 Year
  Sex: Female

DRUGS (9)
  1. TELAVIC (TELAPREVIR) [Suspect]
     Indication: HEPATITIS C
     Route: 048
     Dates: start: 20120515, end: 20120702
  2. REBETOL [Concomitant]
     Route: 048
     Dates: start: 20120627, end: 20120702
  3. PEG-INTRON [Concomitant]
     Indication: HEPATITIS C
     Route: 058
     Dates: start: 20120515, end: 20120529
  4. PEG-INTRON [Concomitant]
     Route: 058
     Dates: start: 20120606, end: 20120702
  5. URSO 250 [Concomitant]
     Route: 048
  6. BIO- THREE [Concomitant]
     Route: 048
     Dates: start: 20120522
  7. PROCTOSEDYL [Concomitant]
     Route: 061
  8. REBETOL [Concomitant]
     Indication: HEPATITIS C
     Route: 048
     Dates: start: 20120515, end: 20120612
  9. REBETOL [Concomitant]
     Route: 048
     Dates: start: 20120613, end: 20120626

REACTIONS (4)
  - WHITE BLOOD CELL COUNT DECREASED [None]
  - HAEMATURIA [None]
  - DEPRESSIVE SYMPTOM [None]
  - URINARY BLADDER HAEMORRHAGE [None]
